FAERS Safety Report 25198680 (Version 1)
Quarter: 2025Q2

REPORT INFORMATION
  Report Type: Spontaneous
  Country: US (occurrence: None)
  Receive Date: 20250414
  Receipt Date: 20250414
  Transmission Date: 20250716
  Serious: Yes (Hospitalization)
  Sender: FDA-CTU
  Company Number: None

PATIENT
  Age: 84 Year
  Sex: Female

DRUGS (1)
  1. PIRFENIDONE [Suspect]
     Active Substance: PIRFENIDONE
     Indication: Idiopathic pulmonary fibrosis

REACTIONS (9)
  - Feeling abnormal [None]
  - Muscular weakness [None]
  - Pneumonia [None]
  - Arthralgia [None]
  - Drug intolerance [None]
  - Overdose [None]
  - Coma [None]
  - Urinary retention [None]
  - Therapy interrupted [None]

NARRATIVE: CASE EVENT DATE: 20250411
